FAERS Safety Report 12852427 (Version 2)
Quarter: 2016Q4

REPORT INFORMATION
  Report Type: Spontaneous
  Country: US (occurrence: US)
  Receive Date: 20161017
  Receipt Date: 20161115
  Transmission Date: 20170207
  Serious: Yes (Death, Hospitalization)
  Sender: FDA-Public Use
  Company Number: US-ACTELION-A-NJ2016-143459

PATIENT
  Age: 8 Year
  Sex: Male

DRUGS (10)
  1. CETIRIZINE [Concomitant]
     Active Substance: CETIRIZINE HYDROCHLORIDE
  2. FUROSEMIDE. [Concomitant]
     Active Substance: FUROSEMIDE
  3. REMODULIN [Concomitant]
     Active Substance: TREPROSTINIL
  4. RANITIDINE. [Concomitant]
     Active Substance: RANITIDINE
  5. LORATADINE. [Concomitant]
     Active Substance: LORATADINE
  6. ASPIRIN. [Concomitant]
     Active Substance: ASPIRIN
  7. SILDENAFIL. [Concomitant]
     Active Substance: SILDENAFIL
  8. TRACLEER [Suspect]
     Active Substance: BOSENTAN
     Indication: PULMONARY ARTERIAL HYPERTENSION
     Dosage: 62.5 MG, BID
     Route: 048
  9. MIRALAX [Concomitant]
     Active Substance: POLYETHYLENE GLYCOL 3350
  10. FOLIC ACID. [Concomitant]
     Active Substance: FOLIC ACID

REACTIONS (1)
  - Complications of transplant surgery [Fatal]
